FAERS Safety Report 26001784 (Version 2)
Quarter: 2025Q4

REPORT INFORMATION
  Report Type: Spontaneous
  Country: AR (occurrence: AR)
  Receive Date: 20251105
  Receipt Date: 20251230
  Transmission Date: 20260118
  Serious: Yes (Hospitalization)
  Sender: NOVARTIS
  Company Number: AR-002147023-NVSC2025AR168987

PATIENT
  Age: 75 Year
  Sex: Female

DRUGS (2)
  1. CARBAMAZEPINE [Interacting]
     Active Substance: CARBAMAZEPINE
     Indication: Epilepsy
     Dosage: 200 MG, Q8H
     Route: 065
  2. CLARITHROMYCIN [Interacting]
     Active Substance: CLARITHROMYCIN
     Indication: Upper respiratory tract infection
     Dosage: 500 MG, Q12H
     Route: 065

REACTIONS (5)
  - Acute vestibular syndrome [Recovering/Resolving]
  - Vertigo [Recovering/Resolving]
  - Oscillopsia [Recovering/Resolving]
  - Anticonvulsant drug level above therapeutic [Recovering/Resolving]
  - Drug interaction [Unknown]
